FAERS Safety Report 24044095 (Version 1)
Quarter: 2024Q3

REPORT INFORMATION
  Report Type: Spontaneous
  Country: GB (occurrence: GB)
  Receive Date: 20240703
  Receipt Date: 20240703
  Transmission Date: 20241017
  Serious: Yes (Other)
  Sender: TEVA
  Company Number: GB-Bristol Laboratories Ltd-BLL202406-000043

PATIENT
  Age: 84 Year
  Sex: Female

DRUGS (4)
  1. TRAMADOL [Suspect]
     Active Substance: TRAMADOL\TRAMADOL HYDROCHLORIDE
     Indication: Fibromyalgia
     Dosage: TAKE ONE 50 MG THREE TIMES A DAY/2-3 TIMES A DAY
     Route: 065
  2. DIAZEPAM [Concomitant]
     Active Substance: DIAZEPAM
     Indication: Stress
     Dosage: NOT TAKE DIAZEPAM REGULARLY SO IT^S ONLY IF MY MUSCLES ARE SPASMING OR I AM VERY STRESSED
     Route: 065
  3. ENALAPRIL MALEATE [Concomitant]
     Active Substance: ENALAPRIL MALEATE
     Dosage: ENALAPRIL MALEATE 20MG
  4. DILTIAZEM [Concomitant]
     Active Substance: DILTIAZEM
     Dosage: DILTIAZEM 200 MG SLOW RELEASE ON DAILY BASIS,

REACTIONS (3)
  - Drug dependence [Unknown]
  - Product availability issue [Unknown]
  - Drug ineffective [Unknown]
